FAERS Safety Report 10078839 (Version 1)
Quarter: 2014Q2

REPORT INFORMATION
  Report Type: Spontaneous
  Country: US (occurrence: US)
  Receive Date: 20140415
  Receipt Date: 20140415
  Transmission Date: 20141212
  Serious: No
  Sender: FDA-Public Use
  Company Number: US-BAYER-2014-046527

PATIENT
  Sex: Female

DRUGS (2)
  1. ALEVE CAPLET [Suspect]
     Dosage: 1 DF, BID
     Route: 048
  2. ALEVE CAPLET [Suspect]
     Dosage: 1 DF, QD
     Route: 048

REACTIONS (5)
  - Therapeutic response changed [None]
  - Dyspepsia [None]
  - Therapeutic response decreased [None]
  - Incorrect drug administration duration [None]
  - Intentional product misuse [None]
